FAERS Safety Report 9422538 (Version 1)
Quarter: 2013Q3

REPORT INFORMATION
  Report Type: Spontaneous
  Country: US (occurrence: US)
  Receive Date: 20130726
  Receipt Date: 20130726
  Transmission Date: 20140515
  Serious: Yes (Other)
  Sender: FDA-Public Use
  Company Number: US-MERCK-1307USA013839

PATIENT
  Sex: Female

DRUGS (1)
  1. JANUMET [Suspect]
     Route: 048

REACTIONS (1)
  - Pancreatitis [Unknown]
